FAERS Safety Report 9450274 (Version 1)
Quarter: 2013Q3

REPORT INFORMATION
  Report Type: Spontaneous
  Country: AT (occurrence: None)
  Receive Date: 20130807
  Receipt Date: 20130807
  Transmission Date: 20140515
  Serious: Yes (Other)
  Sender: FDA-Public Use
  Company Number: 2013000181

PATIENT
  Age: 61 Year
  Sex: Female

DRUGS (6)
  1. ACEON (PERINDOPRIL ERBUMINE) TABLET [Suspect]
     Indication: HYPERTENSION
     Dosage: MORNING
     Route: 048
     Dates: start: 20130705, end: 20130723
  2. RILMENIDINE [Suspect]
     Indication: HYPERTENSION
     Dosage: MORNING
     Route: 048
     Dates: start: 20130705, end: 20130724
  3. DOXAZOSIN MESILATE [Suspect]
     Indication: HYPERTENSION
     Dosage: EVENING
     Route: 048
     Dates: start: 201210
  4. CAPTOPRIL [Suspect]
     Indication: BLOOD PRESSURE
     Route: 048
  5. RIVOTRIL (CLONAZEPAM) [Concomitant]
  6. SPITOMIN (BUSPIRONE HYDROCHLORIDE) [Concomitant]

REACTIONS (2)
  - Blood pressure increased [None]
  - Drug ineffective [None]
